FAERS Safety Report 18215820 (Version 2)
Quarter: 2020Q3

REPORT INFORMATION
  Report Type: Report from Study
  Country: US (occurrence: US)
  Receive Date: 20200901
  Receipt Date: 20200924
  Transmission Date: 20201103
  Serious: Yes (Hospitalization)
  Sender: FDA-Public Use
  Company Number: US-TAIHO ONCOLOGY  INC-EU-2020-03101

PATIENT
  Age: 58 Year
  Sex: Female

DRUGS (11)
  1. GABAPENTIN. [Concomitant]
     Active Substance: GABAPENTIN
  2. MELATONIN [Concomitant]
     Active Substance: MELATONIN
  3. PEPCID [Concomitant]
     Active Substance: FAMOTIDINE
  4. CYCLOBENZAPRINE. [Concomitant]
     Active Substance: CYCLOBENZAPRINE
  5. OXYCODONE [Concomitant]
     Active Substance: OXYCODONE
  6. XYZAL [Concomitant]
     Active Substance: LEVOCETIRIZINE DIHYDROCHLORIDE
  7. PRILOSEC OTC [Concomitant]
     Active Substance: OMEPRAZOLE MAGNESIUM
  8. LONSURF [Suspect]
     Active Substance: TIPIRACIL HYDROCHLORIDE\TRIFLURIDINE
     Indication: COLON CANCER
     Dosage: CURRENT CYCLE UNKNOWN
     Route: 048
     Dates: start: 20200605
  9. PROLIA [Concomitant]
     Active Substance: DENOSUMAB
  10. AMLODIPINE [Concomitant]
     Active Substance: AMLODIPINE BESYLATE
  11. VITAMIN D3 [Concomitant]
     Active Substance: CHOLECALCIFEROL

REACTIONS (4)
  - Disease progression [Unknown]
  - Product dose omission issue [Unknown]
  - Femur fracture [Unknown]
  - White blood cell count decreased [Unknown]

NARRATIVE: CASE EVENT DATE: 20200815
